FAERS Safety Report 5431624-0 (Version None)
Quarter: 2007Q3

REPORT INFORMATION
  Report Type: 
  Country: None (occurrence: None)
  Receive Date: 20070731
  Receipt Date: 20070510
  Transmission Date: 20080115
  Serious: No
  Sender: FDA-Public Use
  Company Number: US200705003065

PATIENT
  Age: 59 Year
  Sex: Female

DRUGS (6)
  1. BYETTA [Suspect]
     Indication: GLUCOSE TOLERANCE IMPAIRED
     Dosage: 5 UG, 2/D, SUBCUTANEOUS  10 UG, 2/D, SQ   10 UG, EACH MORNING, SQ   5 UG, EACH EVENING, SQ
     Route: 058
     Dates: start: 20070101, end: 20070201
  2. BYETTA [Suspect]
     Indication: GLUCOSE TOLERANCE IMPAIRED
     Dosage: 5 UG, 2/D, SUBCUTANEOUS  10 UG, 2/D, SQ   10 UG, EACH MORNING, SQ   5 UG, EACH EVENING, SQ
     Route: 058
     Dates: start: 20070201, end: 20070429
  3. BYETTA [Suspect]
     Indication: GLUCOSE TOLERANCE IMPAIRED
     Dosage: 5 UG, 2/D, SUBCUTANEOUS  10 UG, 2/D, SQ   10 UG, EACH MORNING, SQ   5 UG, EACH EVENING, SQ
     Route: 058
     Dates: start: 20070430, end: 20070501
  4. BYETTA [Suspect]
     Indication: GLUCOSE TOLERANCE IMPAIRED
     Dosage: 5 UG, 2/D, SUBCUTANEOUS  10 UG, 2/D, SQ   10 UG, EACH MORNING, SQ   5 UG, EACH EVENING, SQ
     Route: 058
     Dates: start: 20070430, end: 20070501
  5. BYETTA [Suspect]
  6. EXENATIDE [Concomitant]

REACTIONS (7)
  - EAR INFECTION [None]
  - INSOMNIA [None]
  - NAUSEA [None]
  - PSYCHOMOTOR HYPERACTIVITY [None]
  - SINUSITIS [None]
  - VISION BLURRED [None]
  - WEIGHT DECREASED [None]
